FAERS Safety Report 9702362 (Version 1)
Quarter: 2013Q4

REPORT INFORMATION
  Report Type: Spontaneous
  Country: US (occurrence: US)
  Receive Date: 20131121
  Receipt Date: 20131121
  Transmission Date: 20140711
  Serious: Yes (Hospitalization, Other)
  Sender: FDA-Public Use
  Company Number: US-PFIZER INC-2013333267

PATIENT
  Age: 46 Year
  Sex: Female
  Weight: 80.73 kg

DRUGS (2)
  1. LYRICA [Suspect]
     Dosage: UNK
  2. PRISTIQ [Suspect]
     Dosage: UNK

REACTIONS (2)
  - Dyspnoea [Unknown]
  - Cardiac procedure complication [Unknown]
